FAERS Safety Report 6370077-5 (Version None)
Quarter: 2009Q3

REPORT INFORMATION
  Report Type: 
  Country: None (occurrence: None)
  Receive Date: 20090923
  Receipt Date: 20070512
  Transmission Date: 20100115
  Serious: Yes (Hospitalization, Other)
  Sender: FDA-Public Use
  Company Number: US-ASTRAZENECA-2006UW22209

PATIENT
  Age: 230 Month
  Sex: Female
  Weight: 97.1 kg

DRUGS (20)
  1. SEROQUEL [Suspect]
     Indication: DEPRESSION
     Route: 048
     Dates: start: 20011201
  2. SEROQUEL [Suspect]
     Indication: SUICIDAL IDEATION
     Route: 048
     Dates: start: 20011201
  3. SEROQUEL [Suspect]
     Dosage: 25 TO 75 MG
     Route: 048
     Dates: end: 20051027
  4. SEROQUEL [Suspect]
     Dosage: 25 TO 75 MG
     Route: 048
     Dates: end: 20051027
  5. RISPERDAL [Suspect]
     Route: 048
  6. ABILIFY [Concomitant]
     Route: 048
  7. CYMBALTA [Concomitant]
     Dosage: 3 TO 60 MG
     Route: 048
  8. TOPAMAX [Concomitant]
     Dosage: 25 TO 100 MG
     Route: 048
  9. ZONEGRAN [Concomitant]
     Indication: WEIGHT ABNORMAL
     Dosage: 100 TO 900 MG
     Route: 048
  10. ZONEGRAN [Concomitant]
     Indication: AFFECTIVE DISORDER
     Dosage: 100 TO 900 MG
     Route: 048
  11. PHENERGAN [Concomitant]
     Indication: NAUSEA
     Dosage: 25 TO 50 MG
     Route: 048
  12. PHENERGAN [Concomitant]
     Indication: VOMITING
     Dosage: 25 TO 50 MG
     Route: 048
  13. PHENERGAN [Concomitant]
     Route: 042
  14. PHENERGAN [Concomitant]
     Route: 042
  15. ORTHO TRI-CYCLEN LO [Concomitant]
     Route: 065
  16. DEPO-PROVERA [Concomitant]
     Route: 065
  17. CELEXA [Concomitant]
     Dosage: 10 TO 30 MG
     Route: 048
  18. CONCERTA [Concomitant]
     Route: 065
  19. PNEUMOVAX 23 [Concomitant]
     Route: 030
  20. GLUCOPHAGE [Concomitant]
     Route: 048

REACTIONS (5)
  - DIABETES MELLITUS [None]
  - DIABETIC KETOACIDOSIS [None]
  - KETOACIDOSIS [None]
  - TYPE 1 DIABETES MELLITUS [None]
  - TYPE 2 DIABETES MELLITUS [None]
